FAERS Safety Report 5202607-0 (Version None)
Quarter: 2006Q4

REPORT INFORMATION
  Report Type: 
  Country: None (occurrence: None)
  Receive Date: 20061016
  Receipt Date: 20060822
  Transmission Date: 20070319
  Serious: No
  Sender: FDA-Public Use
  Company Number: 2006SP003091

PATIENT
  Age: 88 Year
  Sex: Female
  Weight: 44.4525 kg

DRUGS (3)
  1. LUNESTA [Suspect]
     Indication: INSOMNIA
     Dosage: 2 MG; HS; ORAL
     Route: 048
     Dates: start: 20060710, end: 20060711
  2. OXYBUTYNIN [Concomitant]
  3. VICODIN [Concomitant]

REACTIONS (1)
  - MIDDLE INSOMNIA [None]
